FAERS Safety Report 6292859-0 (Version None)
Quarter: 2009Q3

REPORT INFORMATION
  Report Type: 
  Country: None (occurrence: None)
  Receive Date: 20090731
  Receipt Date: 20090721
  Transmission Date: 20100115
  Serious: Yes (Hospitalization)
  Sender: FDA-Public Use
  Company Number: PHHY2009KR29988

PATIENT
  Sex: Male

DRUGS (1)
  1. EXJADE [Suspect]
     Indication: IRON OVERLOAD
     Dosage: 437 MG DAILY
     Route: 048
     Dates: start: 20080101, end: 20090302

REACTIONS (1)
  - UNRELATED DONOR BONE MARROW TRANSPLANTATION THERAPY [None]
